FAERS Safety Report 7000724-6 (Version None)
Quarter: 2010Q3

REPORT INFORMATION
  Report Type: 
  Country: None (occurrence: None)
  Receive Date: 20100920
  Receipt Date: 20100603
  Transmission Date: 20110219
  Serious: No
  Sender: FDA-Public Use
  Company Number: US-ASTRAZENECA-2010SE25684

PATIENT
  Age: 31 Year
  Sex: Male
  Weight: 92.5 kg

DRUGS (2)
  1. SEROQUEL [Suspect]
     Indication: SCHIZOPHRENIA, PARANOID TYPE
     Route: 048
     Dates: start: 20070101, end: 20100501
  2. SEROQUEL [Suspect]
     Route: 048
     Dates: start: 20100501

REACTIONS (2)
  - CHOKING [None]
  - DYSPHAGIA [None]
